FAERS Safety Report 16627029 (Version 6)
Quarter: 2021Q3

REPORT INFORMATION
  Report Type: Spontaneous
  Country: US (occurrence: US)
  Receive Date: 20190724
  Receipt Date: 20210930
  Transmission Date: 20211014
  Serious: No
  Sender: FDA-Public Use
  Company Number: US-SA-2019SA199036

PATIENT
  Age: 27 Year
  Sex: Female

DRUGS (2)
  1. DUPIXENT [Suspect]
     Active Substance: DUPILUMAB
     Indication: DERMATITIS ATOPIC
     Dosage: 300 MG, QOW
     Route: 058
     Dates: start: 20190409
  2. DUPIXENT [Suspect]
     Active Substance: DUPILUMAB
     Dosage: 300 MG, QOW
     Route: 058
     Dates: start: 20210411

REACTIONS (7)
  - Eye pain [Unknown]
  - Dry eye [Recovering/Resolving]
  - Lacrimation increased [Unknown]
  - Libido decreased [Unknown]
  - Injection site bruising [Unknown]
  - Ocular hyperaemia [Unknown]
  - Eye irritation [Unknown]
